FAERS Safety Report 5047362-2 (Version None)
Quarter: 2006Q3

REPORT INFORMATION
  Report Type: 
  Country: None (occurrence: None)
  Receive Date: 20060711
  Receipt Date: 20060424
  Transmission Date: 20061208
  Serious: Yes (Other)
  Sender: FDA-Public Use
  Company Number: PHBS2006JP06261

PATIENT
  Age: 85 Year
  Sex: Male
  Weight: 60 kg

DRUGS (9)
  1. RITALIN [Suspect]
     Indication: DEMENTIA ALZHEIMER'S TYPE
     Dosage: 10 MG, QD
     Route: 048
     Dates: start: 20060413, end: 20060425
  2. GANATON [Suspect]
     Indication: GASTRITIS
     Dosage: 50 MG/D
     Route: 048
     Dates: start: 20060412, end: 20060425
  3. XANBON [Suspect]
     Indication: CEREBRAL INFARCTION
     Dosage: 80 MG/D
     Route: 042
     Dates: start: 20060412, end: 20060425
  4. XANBON [Suspect]
     Dosage: 160 MG/D
     Route: 042
     Dates: start: 20060416, end: 20060424
  5. DESYREL [Concomitant]
     Indication: INSOMNIA
     Dosage: 25 MG/D
     Route: 048
     Dates: start: 20060412
  6. DESYREL [Concomitant]
     Dosage: 50 MG/D
     Route: 048
  7. MYSLEE [Concomitant]
     Indication: INSOMNIA
     Dosage: 5 MG/D
     Route: 048
     Dates: start: 20060412
  8. PHYSIOSOL 3 [Concomitant]
     Indication: EATING DISORDER
     Dosage: 1000 ML/D
     Route: 041
     Dates: start: 20060412, end: 20060424
  9. PURSENNID [Concomitant]
     Indication: CONSTIPATION
     Dosage: 24 MG/D
     Route: 048
     Dates: start: 20060414

REACTIONS (6)
  - AGGRESSION [None]
  - BLISTER [None]
  - BRAIN NATRIURETIC PEPTIDE INCREASED [None]
  - HAEMORRHAGE [None]
  - SECRETION DISCHARGE [None]
  - SKIN ULCER [None]
